FAERS Safety Report 5761834-4 (Version None)
Quarter: 2008Q2

REPORT INFORMATION
  Report Type: 
  Country: None (occurrence: None)
  Receive Date: 20080603
  Receipt Date: 20080519
  Transmission Date: 20081010
  Serious: Yes (Hospitalization)
  Sender: FDA-Public Use
  Company Number: ABALB-08-0054

PATIENT
  Age: 55 Year
  Sex: Female

DRUGS (2)
  1. ABRAXANE [Suspect]
     Indication: BREAST CANCER METASTATIC
     Dosage: LAST DOSE (300 MG) PRIOR TO SAE. (120 MG/M2,WEEKLY), ,INTRAVENOUS
     Route: 042
     Dates: start: 20071001
  2. AVASTIN [Concomitant]

REACTIONS (27)
  - ALOPECIA [None]
  - BLOOD ALBUMIN DECREASED [None]
  - BLOOD GLUCOSE INCREASED [None]
  - BLOOD SODIUM DECREASED [None]
  - BLOOD UREA DECREASED [None]
  - CARBON DIOXIDE DECREASED [None]
  - CONJUNCTIVAL IRRITATION [None]
  - DERMATITIS [None]
  - DERMATITIS ALLERGIC [None]
  - DUODENAL ULCER [None]
  - ECTROPION [None]
  - EROSIVE OESOPHAGITIS [None]
  - EYE HAEMORRHAGE [None]
  - EYE IRRITATION [None]
  - GASTROINTESTINAL DISORDER [None]
  - HAEMATOCRIT DECREASED [None]
  - HAEMOGLOBIN DECREASED [None]
  - LACRIMATION INCREASED [None]
  - MADAROSIS [None]
  - MUCOSAL INFLAMMATION [None]
  - ORAL INTAKE REDUCED [None]
  - PYREXIA [None]
  - RASH ERYTHEMATOUS [None]
  - SKIN CHAPPED [None]
  - SKIN EXFOLIATION [None]
  - WEIGHT DECREASED [None]
  - WHITE BLOOD CELL COUNT DECREASED [None]
